FAERS Safety Report 10694882 (Version 1)
Quarter: 2015Q1

REPORT INFORMATION
  Report Type: Spontaneous
  Country: US (occurrence: None)
  Receive Date: 20150105
  Receipt Date: 20150105
  Transmission Date: 20150721
  Serious: No
  Sender: FDA-Public Use
  Company Number: None

PATIENT
  Age: 67 Year
  Sex: Male
  Weight: 63.5 kg

DRUGS (7)
  1. BABY ASPIRIN [Concomitant]
     Active Substance: ASPIRIN
  2. PRIALT [Suspect]
     Active Substance: ZICONOTIDE ACETATE
     Indication: SMALL FIBRE NEUROPATHY
     Dates: start: 20140818, end: 20140911
  3. WELLBUTRIN [Concomitant]
     Active Substance: BUPROPION HYDROCHLORIDE
  4. COLACE [Concomitant]
     Active Substance: DOCUSATE SODIUM
  5. MEDTRONIC DRUG INFUSION [Concomitant]
  6. SENNA [Concomitant]
     Active Substance: SENNA LEAF\SENNOSIDES\SENNOSIDES A AND B
  7. CLOMID [Concomitant]
     Active Substance: CLOMIPHENE CITRATE

REACTIONS (4)
  - Photosensitivity reaction [None]
  - Memory impairment [None]
  - Vision blurred [None]
  - Unevaluable event [None]

NARRATIVE: CASE EVENT DATE: 20140823
